FAERS Safety Report 22272813 (Version 1)
Quarter: 2023Q2

REPORT INFORMATION
  Report Type: Spontaneous
  Country: JP (occurrence: JP)
  Receive Date: 20230502
  Receipt Date: 20230502
  Transmission Date: 20230722
  Serious: No
  Sender: FDA-Public Use
  Company Number: JP-ALKEM LABORATORIES LIMITED-JP-ALKEM-2022-05469

PATIENT
  Age: 22 Year
  Sex: Male
  Weight: 50 kg

DRUGS (2)
  1. LIDOCAINE [Suspect]
     Active Substance: LIDOCAINE
     Indication: Tongue haemorrhage
     Dosage: 10 MILLILITER, FOR ABOUT 45 MINUTES, AS NEEDED
     Route: 048
  2. LIDOCAINE [Suspect]
     Active Substance: LIDOCAINE
     Indication: Tongue ulceration
     Dosage: 4800 MILLIGRAM (240 ML), OD
     Route: 048

REACTIONS (4)
  - Diplopia [Unknown]
  - Visual impairment [Unknown]
  - Overdose [Unknown]
  - Toxicity to various agents [Unknown]
